FAERS Safety Report 25183034 (Version 1)
Quarter: 2025Q2

REPORT INFORMATION
  Report Type: Report from Study
  Country: US (occurrence: US)
  Receive Date: 20250410
  Receipt Date: 20250410
  Transmission Date: 20250716
  Serious: Yes (Other)
  Sender: AUROBINDO
  Company Number: US-MLMSERVICE-20250321-PI453479-00155-1

PATIENT
  Age: 41 Month
  Sex: Male

DRUGS (1)
  1. FLUTICASONE PROPIONATE [Suspect]
     Active Substance: FLUTICASONE PROPIONATE
     Indication: Asthma
     Dosage: 100 MICROGRAM, ONCE A DAY

REACTIONS (2)
  - Adrenal suppression [Unknown]
  - Drug hypersensitivity [Unknown]
